FAERS Safety Report 9889311 (Version 1)
Quarter: 2014Q1

REPORT INFORMATION
  Report Type: Other
  Country: GB (occurrence: GB)
  Receive Date: 20140211
  Receipt Date: 20140211
  Transmission Date: 20141002
  Serious: Yes (Other)
  Sender: FDA-Public Use
  Company Number: GB-TAKEDA-2014TJP001035

PATIENT
  Sex: 0

DRUGS (4)
  1. LANSOPRAZOLE [Suspect]
     Indication: DYSPEPSIA
     Dosage: 15 MG, QD
     Route: 048
     Dates: start: 20131111, end: 20131212
  2. MIRTAZAPINE [Suspect]
     Indication: DEPRESSED MOOD
     Dosage: 15 MG, QD
     Route: 048
     Dates: start: 20131111, end: 20131212
  3. PREGABALIN [Concomitant]
     Dosage: UNK
  4. CITALOPRAM [Concomitant]
     Dosage: UNK

REACTIONS (4)
  - Hepatitis acute [Recovering/Resolving]
  - Gamma-glutamyltransferase increased [Recovering/Resolving]
  - Blood cholesterol increased [Recovering/Resolving]
  - Alanine aminotransferase increased [Recovering/Resolving]
